FAERS Safety Report 4924197-X (Version None)
Quarter: 2006Q1

REPORT INFORMATION
  Report Type: 
  Country: None (occurrence: None)
  Receive Date: 20060221
  Receipt Date: 20060213
  Transmission Date: 20060701
  Serious: Yes (Death, Hospitalization)
  Sender: FDA-Public Use
  Company Number: HQWYE799414FEB06

PATIENT
  Age: 68 Year
  Sex: Female

DRUGS (2)
  1. TYGACIL [Suspect]
     Indication: BACTERIAL INFECTION
     Dosage: 100MG LOADING DOSE THEN 50MG TWICE DAILY, INTRAVENOUS
     Route: 042
     Dates: start: 20060101, end: 20060101
  2. TYGACIL [Suspect]
     Indication: PNEUMONIA BACTERIAL
     Dosage: 100MG LOADING DOSE THEN 50MG TWICE DAILY, INTRAVENOUS
     Route: 042
     Dates: start: 20060101, end: 20060101

REACTIONS (1)
  - BACTERIAL INFECTION [None]
